FAERS Safety Report 15357609 (Version 2)
Quarter: 2019Q2

REPORT INFORMATION
  Report Type: Spontaneous
  Country: CA (occurrence: CA)
  Receive Date: 20180906
  Receipt Date: 20190626
  Transmission Date: 20190711
  Serious: Yes (Hospitalization)
  Sender: FDA-Public Use
  Company Number: CA-TEVA-2018-CA-951609

PATIENT
  Age: 65 Year
  Sex: Female

DRUGS (2)
  1. TYLENOL SINUS DAYTIME [Concomitant]
  2. AMOXICILLIN/CLAVULANIC ACID [Suspect]
     Active Substance: AMOXICILLIN\CLAVULANIC ACID
     Indication: SINUSITIS
     Route: 048

REACTIONS (3)
  - Jaundice [Unknown]
  - Pruritus [Unknown]
  - Fatigue [Unknown]
